FAERS Safety Report 9475680 (Version 1)
Quarter: 2013Q3

REPORT INFORMATION
  Report Type: Report from Study
  Country: AR (occurrence: AR)
  Receive Date: 20130826
  Receipt Date: 20130826
  Transmission Date: 20140515
  Serious: Yes (Other)
  Sender: FDA-Public Use
  Company Number: PHHY2013AR091779

PATIENT
  Sex: Female

DRUGS (1)
  1. RASILEZ [Suspect]
     Indication: BLOOD PRESSURE
     Dosage: 0.5 DF DAILY
     Route: 048
     Dates: start: 2012

REACTIONS (4)
  - Fall [Unknown]
  - Upper limb fracture [Recovering/Resolving]
  - Sensory loss [Recovering/Resolving]
  - Wrong technique in drug usage process [Unknown]
